FAERS Safety Report 13345053 (Version 2)
Quarter: 2019Q1

REPORT INFORMATION
  Report Type: Spontaneous
  Country: ES (occurrence: ES)
  Receive Date: 20170317
  Receipt Date: 20190312
  Transmission Date: 20190417
  Serious: Yes (Other)
  Sender: FDA-Public Use
  Company Number: ES-009507513-1703ESP005972

PATIENT
  Age: 69 Year
  Sex: Male

DRUGS (15)
  1. PANTOPRAZOLE [Concomitant]
     Active Substance: PANTOPRAZOLE
     Dosage: UNK
     Route: 042
  2. MEROPENEM. [Concomitant]
     Active Substance: MEROPENEM
     Dosage: UNK
  3. BLASTON [Concomitant]
     Dosage: UNK
  4. EMCONCOR COR [Concomitant]
     Active Substance: BISOPROLOL
     Dosage: UNK
  5. NOCTAMID [Concomitant]
     Active Substance: LORMETAZEPAM
     Dosage: 2 MG, UNK
  6. HEPARIN SODIUM. [Concomitant]
     Active Substance: HEPARIN SODIUM
     Dosage: UNK
  7. MAGNOGENE [Concomitant]
     Dosage: UNK
  8. MYCOSTATIN [Concomitant]
     Active Substance: NYSTATIN
     Dosage: DOSAGE FORM: 170 (UNIT NOT REPORTED)
  9. HUMULIN R [Concomitant]
     Active Substance: INSULIN HUMAN
     Dosage: UNK
  10. ADIRO [Concomitant]
     Active Substance: ASPIRIN
     Dosage: UNK
  11. CUBICIN [Suspect]
     Active Substance: DAPTOMYCIN
     Indication: INFECTION
     Dosage: 700 MG, UNK
     Route: 042
     Dates: start: 20160705
  12. DUPHALAC [Concomitant]
     Active Substance: LACTULOSE
     Dosage: UNK
  13. ALDACTONE [Concomitant]
     Active Substance: SPIRONOLACTONE
     Dosage: UNK
  14. ZARATOR [Concomitant]
     Active Substance: ATORVASTATIN CALCIUM
     Dosage: UNK
  15. FUROSEMIDE. [Concomitant]
     Active Substance: FUROSEMIDE
     Dosage: UNK
     Route: 048

REACTIONS (2)
  - Hypertransaminasaemia [Recovered/Resolved]
  - Cholestasis [Recovered/Resolved]

NARRATIVE: CASE EVENT DATE: 20160711
